FAERS Safety Report 9538646 (Version 1)
Quarter: 2013Q2

REPORT INFORMATION
  Report Type: Spontaneous
  Country: US (occurrence: None)
  Receive Date: 20130517
  Receipt Date: 20130517
  Transmission Date: 20140414
  Serious: No
  Sender: FDA-Public Use
  Company Number: 1000043402

PATIENT
  Age: 53 Year
  Sex: Female

DRUGS (4)
  1. VIIBRYD [Suspect]
     Indication: DEPRESSION
     Route: 048
     Dates: start: 20130308
  2. TENORMIN ( ATENOLOL) (ATENOLOL) [Concomitant]
  3. MIRAPEX ( PRAMIPEXOLE DIHYDROCHLORIDE) ( PRAMIPEXOLE DIHYDROCHLORIDE) [Concomitant]
  4. VALIUM ( DIAZEPAM) ( DIAZEPAM) [Concomitant]

REACTIONS (1)
  - Myalgia [None]
